FAERS Safety Report 7638999-2 (Version None)
Quarter: 2011Q3

REPORT INFORMATION
  Report Type: 
  Country: None (occurrence: None)
  Receive Date: 20110727
  Receipt Date: 20110725
  Transmission Date: 20111222
  Serious: No
  Sender: FDA-Public Use
  Company Number: US-PFIZER INC-2011134207

PATIENT
  Sex: Male
  Weight: 68 kg

DRUGS (2)
  1. CHANTIX [Suspect]
     Indication: TOBACCO ABUSE
     Dosage: 0.5 MG, 1X/DAY
     Route: 048
     Dates: start: 20110604, end: 20110601
  2. CHANTIX [Suspect]
     Dosage: UNK
     Route: 048
     Dates: start: 20110601, end: 20110610

REACTIONS (2)
  - OEDEMA PERIPHERAL [None]
  - ERYTHEMA [None]
